FAERS Safety Report 11095853 (Version 1)
Quarter: 2015Q2

REPORT INFORMATION
  Report Type: Spontaneous
  Country: GB (occurrence: GB)
  Receive Date: 20150507
  Receipt Date: 20150507
  Transmission Date: 20150821
  Serious: Yes (Life-Threatening, Hospitalization)
  Sender: FDA-Public Use
  Company Number: PHFR2015GB003497

PATIENT
  Age: 67 Year
  Sex: Female

DRUGS (9)
  1. SIMVASTATIN. [Concomitant]
     Active Substance: SIMVASTATIN
     Route: 065
  2. ATENOLOL. [Concomitant]
     Active Substance: ATENOLOL
     Route: 065
  3. LISINOPRIL. [Concomitant]
     Active Substance: LISINOPRIL
     Route: 065
  4. EXEMESTANE. [Concomitant]
     Active Substance: EXEMESTANE
     Route: 065
  5. FEXOFENADINE [Concomitant]
     Active Substance: FEXOFENADINE\FEXOFENADINE HYDROCHLORIDE
     Route: 065
  6. EVEROLIMUS [Suspect]
     Active Substance: EVEROLIMUS
     Indication: BREAST CANCER METASTATIC
     Dosage: 10 MG, QD
     Route: 065
     Dates: start: 20150201
  7. EVEROLIMUS [Suspect]
     Active Substance: EVEROLIMUS
     Dosage: 5 MG, QD
     Route: 065
     Dates: end: 201504
  8. FLUCLOXACILLIN [Concomitant]
     Active Substance: FLUCLOXACILLIN
     Route: 065
  9. BENDROFLUMETHIAZIDE [Concomitant]
     Active Substance: BENDROFLUMETHIAZIDE
     Route: 065

REACTIONS (6)
  - Pulmonary oedema [Recovering/Resolving]
  - Gastrointestinal disorder [Recovering/Resolving]
  - Dyspnoea [Recovering/Resolving]
  - Malaise [Recovering/Resolving]
  - Oxygen saturation decreased [Recovering/Resolving]
  - Cardiac failure acute [Recovering/Resolving]

NARRATIVE: CASE EVENT DATE: 20150419
